FAERS Safety Report 18013389 (Version 1)
Quarter: 2020Q3

REPORT INFORMATION
  Report Type: Spontaneous
  Country: US (occurrence: US)
  Receive Date: 20200710
  Receipt Date: 20200710
  Transmission Date: 20201103
  Serious: No
  Sender: FDA-Public Use
  Company Number: None

PATIENT
  Age: 74 Year
  Sex: Male
  Weight: 79 kg

DRUGS (15)
  1. POSACONAZOLE DR 300 MG [Concomitant]
     Dates: start: 20200407, end: 20200417
  2. ROSUVASTATIN 5 MG [Concomitant]
     Active Substance: ROSUVASTATIN
     Dates: start: 20200407, end: 20200417
  3. LANSOPRAZOLE 30 MG [Concomitant]
     Active Substance: LANSOPRAZOLE
     Dates: start: 20200408, end: 20200417
  4. ZARXIO [Suspect]
     Active Substance: FILGRASTIM-SNDZ
     Indication: NEUTROPENIA
     Route: 058
     Dates: start: 20200408, end: 20200410
  5. MELATONIN 10 MG [Concomitant]
     Active Substance: MELATONIN
     Dates: start: 20200407, end: 20200417
  6. MULTIVITAMIN TABLET [Concomitant]
     Dates: start: 20200408, end: 20200417
  7. AZITHROMYCIN 250 MG [Concomitant]
     Active Substance: AZITHROMYCIN ANHYDROUS
     Dates: start: 20200408, end: 20200417
  8. SULFAMETHOXAZOLE TRIMETHOPRIM 800?160 MG [Concomitant]
     Dates: start: 20200408, end: 20200409
  9. ONDANSETRON 4 MG [Concomitant]
     Active Substance: ONDANSETRON
     Dates: start: 20200407, end: 20200417
  10. ACETAMINOPHEN 500 MG [Concomitant]
     Active Substance: ACETAMINOPHEN
     Dates: start: 20200407, end: 20200417
  11. OXYCODONE 2.5?5MG [Concomitant]
     Dates: start: 20200407, end: 20200417
  12. TACROLIMUS 1 MG [Concomitant]
     Active Substance: TACROLIMUS
     Dates: start: 20200407, end: 20200408
  13. CALCIUM CARBONATE 1250 MG [Concomitant]
     Dates: start: 20200407, end: 20200417
  14. PREDNISONE 20 MG [Concomitant]
     Active Substance: PREDNISONE
     Dates: start: 20200408
  15. MAGNESIUM OXIDE 400 MG [Concomitant]
     Active Substance: MAGNESIUM OXIDE
     Dates: start: 20200408, end: 20200417

REACTIONS (4)
  - Organising pneumonia [None]
  - Acute lung injury [None]
  - Hypoxia [None]
  - Dyspnoea [None]

NARRATIVE: CASE EVENT DATE: 20200410
